FAERS Safety Report 9990291 (Version 1)
Quarter: 2014Q1

REPORT INFORMATION
  Report Type: Report from Study
  Country: US (occurrence: US)
  Receive Date: 20140310
  Receipt Date: 20140310
  Transmission Date: 20141002
  Serious: Yes (Hospitalization)
  Sender: FDA-Public Use
  Company Number: US-ABBVIE-13P-163-1133333-00

PATIENT
  Sex: Male

DRUGS (3)
  1. HUMIRA [Suspect]
     Indication: CROHN^S DISEASE
     Dates: start: 20120430, end: 201210
  2. HUMIRA [Suspect]
     Dates: start: 201210, end: 201307
  3. HUMIRA [Suspect]
     Dates: start: 201308

REACTIONS (3)
  - Rectal abscess [Recovering/Resolving]
  - Crohn^s disease [Recovered/Resolved]
  - Treatment noncompliance [Unknown]
